FAERS Safety Report 4832328-5 (Version None)
Quarter: 2005Q4

REPORT INFORMATION
  Report Type: 
  Country: None (occurrence: None)
  Receive Date: 20051121
  Receipt Date: 20051111
  Transmission Date: 20060501
  Serious: Yes (Other)
  Sender: FDA-Public Use
  Company Number: DE-BOEHRINGER INGELHEIM PHARMACEUTICALS, INC.-2005-DE-04956GD

PATIENT

DRUGS (2)
  1. NEVIRAPINE [Suspect]
     Indication: HIV INFECTION
  2. HIGHLY ACTIVE ANTIRETROVIRAL THERAPY [Suspect]
     Indication: HIV INFECTION

REACTIONS (4)
  - DRUG INEFFECTIVE [None]
  - DRUG TOXICITY [None]
  - MEDICATION ERROR [None]
  - UNEVALUABLE EVENT [None]
